FAERS Safety Report 25948831 (Version 2)
Quarter: 2025Q4

REPORT INFORMATION
  Report Type: Spontaneous
  Country: JP (occurrence: JP)
  Receive Date: 20251022
  Receipt Date: 20251103
  Transmission Date: 20260117
  Serious: Yes (Other)
  Sender: AMGEN
  Company Number: JP-AMGEN-JPNSP2025205898

PATIENT
  Age: 8 Decade
  Sex: Male

DRUGS (2)
  1. BEVACIZUMAB [Suspect]
     Active Substance: BEVACIZUMAB
     Indication: Hepatocellular carcinoma
     Dosage: UNK (NINE CYCLES) (INTRAVENOUS DRIP INFUSION)
     Route: 040
     Dates: start: 202110
  2. ATEZOLIZUMAB [Concomitant]
     Active Substance: ATEZOLIZUMAB
     Indication: Hepatocellular carcinoma
     Dosage: UNK (NINE CYCLES)
     Route: 065
     Dates: start: 202110

REACTIONS (6)
  - Ascites [Unknown]
  - Therapeutic product effect decreased [Unknown]
  - Decubitus ulcer [Unknown]
  - Generalised oedema [Unknown]
  - Breath sounds abnormal [Unknown]
  - Oxygen saturation decreased [Unknown]
